FAERS Safety Report 7705392-3 (Version None)
Quarter: 2011Q3

REPORT INFORMATION
  Report Type: 
  Country: None (occurrence: None)
  Receive Date: 20110824
  Receipt Date: 20110816
  Transmission Date: 20111222
  Serious: Yes (Other)
  Sender: FDA-Public Use
  Company Number: US-US-EMD SERONO, INC.-7077625

PATIENT
  Sex: Male

DRUGS (7)
  1. CLARITIN [Concomitant]
     Indication: INSOMNIA
  2. UNSPECIFIED MEDICATION [Concomitant]
  3. REBIF [Suspect]
     Indication: PRODUCT USED FOR UNKNOWN INDICATION
     Route: 058
     Dates: start: 20090805
  4. MOTRIN [Concomitant]
     Indication: PREMEDICATION
  5. VALIUM [Concomitant]
     Indication: INSOMNIA
  6. AMPYRA [Concomitant]
     Indication: NEUROPATHY PERIPHERAL
  7. UNSPECIFIED SLEEPING PILL [Concomitant]
     Indication: INSOMNIA

REACTIONS (3)
  - NEPHROLITHIASIS [None]
  - PAIN [None]
  - TEMPOROMANDIBULAR JOINT SYNDROME [None]
